FAERS Safety Report 7072974-4 (Version None)
Quarter: 2010Q4

REPORT INFORMATION
  Report Type: 
  Country: None (occurrence: None)
  Receive Date: 20101029
  Receipt Date: 20100406
  Transmission Date: 20110411
  Serious: No
  Sender: FDA-Public Use
  Company Number: A0853732A

PATIENT
  Age: 66 Year
  Sex: Male

DRUGS (6)
  1. ADVAIR DISKUS 100/50 [Suspect]
     Indication: CHRONIC OBSTRUCTIVE PULMONARY DISEASE
     Dosage: 1PUFF PER DAY
     Route: 055
     Dates: start: 20060101, end: 20060101
  2. ADVAIR DISKUS 100/50 [Suspect]
     Dosage: 1PUFF PER DAY
     Route: 055
     Dates: start: 20070101
  3. QVAR 40 [Concomitant]
  4. ALBUTEROL [Concomitant]
  5. LOPRESSOR [Concomitant]
  6. XANAX [Concomitant]

REACTIONS (5)
  - ARTHRALGIA [None]
  - HEART RATE INCREASED [None]
  - INCREASED APPETITE [None]
  - MYALGIA [None]
  - WEIGHT INCREASED [None]
